FAERS Safety Report 16384351 (Version 1)
Quarter: 2019Q2

REPORT INFORMATION
  Report Type: Spontaneous
  Country: IL (occurrence: IL)
  Receive Date: 20190603
  Receipt Date: 20190603
  Transmission Date: 20190711
  Serious: Yes (Hospitalization, Other)
  Sender: FDA-Public Use
  Company Number: IL-TOLMAR, INC.-TOLG20192265

PATIENT
  Age: 24 Year
  Sex: Male

DRUGS (1)
  1. ATRIDOX [Suspect]
     Active Substance: DOXYCYCLINE HYCLATE
     Indication: RELAPSING FEVER
     Dosage: 100 MG
     Route: 048

REACTIONS (7)
  - Hyperhidrosis [Recovered/Resolved]
  - Hypotension [Recovered/Resolved]
  - Disorientation [Recovered/Resolved]
  - Chills [Recovered/Resolved]
  - Jarisch-Herxheimer reaction [Recovered/Resolved]
  - Pyrexia [Recovered/Resolved]
  - Agitation [Recovered/Resolved]
